FAERS Safety Report 6027902-7 (Version None)
Quarter: 2008Q4

REPORT INFORMATION
  Report Type: 
  Country: None (occurrence: None)
  Receive Date: 20081230
  Receipt Date: 20081219
  Transmission Date: 20090506
  Serious: Yes (Hospitalization)
  Sender: FDA-Public Use
  Company Number: GXKR2008DE12051

PATIENT
  Age: 55 Year
  Sex: Female

DRUGS (11)
  1. ZOPICLONE (NGX) (ZOPICLONE) [Suspect]
     Dosage: 15 MG, QD, ORAL
     Route: 048
     Dates: start: 20080417, end: 20080808
  2. DIAZEPAM [Suspect]
     Dosage: 10 MG, QD, ORAL
     Route: 048
     Dates: start: 20080417, end: 20080530
  3. VALPROIC ACID [Suspect]
     Dosage: 500 MG, QD 800 MG, QD, ORAL 1500 MG, QD, ORAL 2000 MG, QD, ORAL 2 MG, QD, ORAL 1000 MG, QD, ORAL
     Dates: start: 20080129, end: 20080410
  4. VALPROIC ACID [Suspect]
     Dosage: 500 MG, QD 800 MG, QD, ORAL 1500 MG, QD, ORAL 2000 MG, QD, ORAL 2 MG, QD, ORAL 1000 MG, QD, ORAL
     Dates: start: 20080411, end: 20080417
  5. VALPROIC ACID [Suspect]
     Dosage: 500 MG, QD 800 MG, QD, ORAL 1500 MG, QD, ORAL 2000 MG, QD, ORAL 2 MG, QD, ORAL 1000 MG, QD, ORAL
     Dates: start: 20080418, end: 20080421
  6. VALPROIC ACID [Suspect]
     Dosage: 500 MG, QD 800 MG, QD, ORAL 1500 MG, QD, ORAL 2000 MG, QD, ORAL 2 MG, QD, ORAL 1000 MG, QD, ORAL
     Dates: start: 20080422, end: 20080424
  7. VALPROIC ACID [Suspect]
     Dosage: 500 MG, QD 800 MG, QD, ORAL 1500 MG, QD, ORAL 2000 MG, QD, ORAL 2 MG, QD, ORAL 1000 MG, QD, ORAL
     Dates: start: 20080425, end: 20080606
  8. VALPROIC ACID [Suspect]
     Dosage: 500 MG, QD 800 MG, QD, ORAL 1500 MG, QD, ORAL 2000 MG, QD, ORAL 2 MG, QD, ORAL 1000 MG, QD, ORAL
     Dates: start: 20080607, end: 20080620
  9. VALPROIC ACID [Suspect]
     Dosage: 500 MG, QD 800 MG, QD, ORAL 1500 MG, QD, ORAL 2000 MG, QD, ORAL 2 MG, QD, ORAL 1000 MG, QD, ORAL
     Dates: start: 20080621, end: 20080626
  10. VALPROIC ACID [Suspect]
     Dosage: 500 MG, QD 800 MG, QD, ORAL 1500 MG, QD, ORAL 2000 MG, QD, ORAL 2 MG, QD, ORAL 1000 MG, QD, ORAL
     Dates: start: 20080625, end: 20080708
  11. ZYPREXA [Suspect]
     Dosage: 10 MG, QD
     Dates: start: 20080428, end: 20080530

REACTIONS (1)
  - LIVER FUNCTION TEST ABNORMAL [None]
